FAERS Safety Report 4971171-3 (Version None)
Quarter: 2006Q1

REPORT INFORMATION
  Report Type: 
  Country: None (occurrence: None)
  Receive Date: 20060222
  Receipt Date: 20051115
  Transmission Date: 20060701
  Serious: Yes (Other)
  Sender: FDA-Public Use
  Company Number: HQWYE599117NOV05

PATIENT
  Age: 79 Year
  Sex: Female
  Weight: 84.44 kg

DRUGS (1)
  1. PROTONIX [Suspect]
     Indication: GASTRIC DISORDER
     Dosage: 40 MG 2X PER 1 DAY, ORAL
     Route: 048
     Dates: start: 20051017, end: 20051018

REACTIONS (1)
  - URTICARIA [None]
